FAERS Safety Report 11696555 (Version 4)
Quarter: 2017Q4

REPORT INFORMATION
  Report Type: Spontaneous
  Country: IT (occurrence: IT)
  Receive Date: 20151104
  Receipt Date: 20171221
  Transmission Date: 20180320
  Serious: Yes (Hospitalization, Other)
  Sender: FDA-Public Use
  Company Number: IT-PFIZER INC-2015370887

PATIENT
  Age: 36 Year
  Sex: Male

DRUGS (10)
  1. DEPAKIN [Suspect]
     Active Substance: VALPROATE SODIUM
     Indication: INTENTIONAL SELF-INJURY
     Dosage: 1 DF, DAILY
     Route: 048
     Dates: start: 20150910, end: 20150910
  2. ABILIFY [Suspect]
     Active Substance: ARIPIPRAZOLE
     Indication: INTENTIONAL SELF-INJURY
     Dosage: 1 DF, 1X/DAY
     Route: 048
     Dates: start: 20150910, end: 20150910
  3. CLONAZEPAM. [Suspect]
     Active Substance: CLONAZEPAM
     Indication: INTENTIONAL SELF-INJURY
     Dosage: 1DF=20TABLETS
     Route: 048
     Dates: start: 20150910, end: 20150910
  4. ZOLOFT [Suspect]
     Active Substance: SERTRALINE HYDROCHLORIDE
     Dosage: 3 BLISTERS AT A SINGLE TIME
     Route: 048
     Dates: start: 20150910, end: 20150910
  5. SERTRALINE HCL [Suspect]
     Active Substance: SERTRALINE HYDROCHLORIDE
     Indication: INTENTIONAL SELF-INJURY
     Dosage: 1 DF=3
     Route: 048
  6. RIVOTRIL [Suspect]
     Active Substance: CLONAZEPAM
     Dosage: 20 DOSAGE FORMS AT A SINGLE TIME
     Route: 048
     Dates: start: 20150910, end: 20150910
  7. DEPAKIN [Suspect]
     Active Substance: VALPROATE SODIUM
     Dosage: 3 BLISTERS AT A SINGLE TIME
     Route: 048
     Dates: start: 20150910, end: 20150910
  8. ZOLOFT [Suspect]
     Active Substance: SERTRALINE HYDROCHLORIDE
     Indication: INTENTIONAL SELF-INJURY
     Dosage: 1 DF, UNK
     Route: 048
  9. RIVOTRIL [Suspect]
     Active Substance: CLONAZEPAM
     Indication: INTENTIONAL SELF-INJURY
     Dosage: 1 DF, UNK
     Route: 048
     Dates: start: 20150910, end: 20150910
  10. ABILIFY [Suspect]
     Active Substance: ARIPIPRAZOLE
     Dosage: 3 BLISTERS AT A SINGLE TIME
     Route: 048
     Dates: start: 20150910, end: 20150910

REACTIONS (5)
  - Self-injurious ideation [Unknown]
  - Intentional self-injury [Recovering/Resolving]
  - Intentional overdose [Recovered/Resolved]
  - Frustration tolerance decreased [Unknown]
  - Sopor [Recovered/Resolved]

NARRATIVE: CASE EVENT DATE: 20150901
